FAERS Safety Report 4567849-6 (Version None)
Quarter: 2005Q1

REPORT INFORMATION
  Report Type: 
  Country: None (occurrence: None)
  Receive Date: 20050202
  Receipt Date: 20041101
  Transmission Date: 20050727
  Serious: No
  Sender: FDA-Public Use
  Company Number: US-GLAXOSMITHKLINE-A0532012A

PATIENT
  Age: 80 Year
  Sex: Male

DRUGS (14)
  1. AVANDAMET [Suspect]
     Dosage: 2MG THREE TIMES PER DAY
     Route: 048
     Dates: start: 20041029
  2. ENAPRIL [Concomitant]
  3. HYDROCHLOROTHIAZIDE [Concomitant]
  4. COREG [Concomitant]
  5. NORVASC [Concomitant]
  6. ASPIRIN [Concomitant]
  7. FOLIC ACID [Concomitant]
  8. ZOCOR [Concomitant]
  9. POTASSIUM CHLORIDE [Concomitant]
  10. PRILOSEC [Concomitant]
  11. VITAMIN E [Concomitant]
  12. OMEGA 3 FISH OIL [Concomitant]
  13. MULTI-VITAMINS [Concomitant]
  14. STARLIX [Concomitant]

REACTIONS (1)
  - DIARRHOEA [None]
